FAERS Safety Report 11064490 (Version 3)
Quarter: 2015Q2

REPORT INFORMATION
  Report Type: Spontaneous
  Country: US (occurrence: US)
  Receive Date: 20150424
  Receipt Date: 20150610
  Transmission Date: 20150821
  Serious: Yes (Other)
  Sender: FDA-Public Use
  Company Number: US-PFIZER INC-2015136192

PATIENT
  Age: 73 Year
  Sex: Female

DRUGS (8)
  1. AROMASIN [Suspect]
     Active Substance: EXEMESTANE
     Indication: INVASIVE DUCTAL BREAST CARCINOMA
     Dosage: 25 MG, 1X/DAY
     Route: 048
     Dates: start: 20150310
  2. ATORVASTATIN CALCIUM. [Concomitant]
     Active Substance: ATORVASTATIN CALCIUM
  3. KEPPRA [Concomitant]
     Active Substance: LEVETIRACETAM
  4. METHOCARBAMOL. [Concomitant]
     Active Substance: METHOCARBAMOL
  5. MORPHINE [Concomitant]
     Active Substance: MORPHINE
  6. TRAZODONE [Concomitant]
     Active Substance: TRAZODONE HYDROCHLORIDE
  7. LEVOTHYROXINE [Concomitant]
     Active Substance: LEVOTHYROXINE
  8. VENLAFAXINE [Concomitant]
     Active Substance: VENLAFAXINE HYDROCHLORIDE

REACTIONS (3)
  - Arthralgia [Not Recovered/Not Resolved]
  - Arthritis [Unknown]
  - Blood alkaline phosphatase increased [Unknown]
